FAERS Safety Report 8906384 (Version 1)
Quarter: 2012Q4

REPORT INFORMATION
  Report Type: Spontaneous
  Country: US (occurrence: None)
  Receive Date: 20121109
  Receipt Date: 20121109
  Transmission Date: 20130627
  Serious: Yes (Other)
  Sender: FDA-Public Use
  Company Number: None

PATIENT
  Sex: Female
  Weight: 52.16 kg

DRUGS (1)
  1. ALPHAGAN [Suspect]
     Indication: GLAUCOMA
     Route: 031
     Dates: start: 201105

REACTIONS (4)
  - Ocular hyperaemia [None]
  - Eye pain [None]
  - Balance disorder [None]
  - Drug hypersensitivity [None]
